FAERS Safety Report 10879398 (Version 1)
Quarter: 2015Q1

REPORT INFORMATION
  Report Type: Spontaneous
  Country: US (occurrence: None)
  Receive Date: 20150224
  Receipt Date: 20150224
  Transmission Date: 20150721
  Serious: Yes (Hospitalization)
  Sender: FDA-Public Use
  Company Number: None

PATIENT
  Age: 59 Year
  Sex: Female
  Weight: 46.3 kg

DRUGS (2)
  1. TAXOL [Suspect]
     Active Substance: PACLITAXEL
     Dates: end: 20150119
  2. CARBOPLATIN. [Suspect]
     Active Substance: CARBOPLATIN
     Dates: end: 20150119

REACTIONS (4)
  - Hypertension [None]
  - Peripheral swelling [None]
  - Dyspnoea [None]
  - Productive cough [None]

NARRATIVE: CASE EVENT DATE: 20150222
